FAERS Safety Report 7900359-4 (Version None)
Quarter: 2011Q4

REPORT INFORMATION
  Report Type: 
  Country: None (occurrence: None)
  Receive Date: 20111108
  Receipt Date: 20111102
  Transmission Date: 20120403
  Serious: No
  Sender: FDA-Public Use
  Company Number: US-PFIZER INC-2011268960

PATIENT
  Sex: Female

DRUGS (1)
  1. XALKORI [Suspect]
     Indication: BRONCHIAL CARCINOMA
     Dosage: 250 MG, UNK
     Dates: start: 20111001

REACTIONS (4)
  - VOMITING [None]
  - FATIGUE [None]
  - NAUSEA [None]
  - CONSTIPATION [None]
